FAERS Safety Report 5935838-2 (Version None)
Quarter: 2008Q4

REPORT INFORMATION
  Report Type: 
  Country: None (occurrence: None)
  Receive Date: 20081030
  Receipt Date: 20081024
  Transmission Date: 20090506
  Serious: Yes (Life-Threatening, Other)
  Sender: FDA-Public Use
  Company Number: PHHY2008JP18557

PATIENT
  Sex: Male
  Weight: 50 kg

DRUGS (9)
  1. TEGRETOL [Suspect]
     Indication: CANCER PAIN
     Dosage: 600 MG DAILY
     Route: 048
     Dates: start: 20080702
  2. TEGRETOL [Suspect]
     Indication: PAIN
  3. FENTANYL CITRATE [Concomitant]
     Indication: CANCER PAIN
     Dosage: 10 MG PER 72 HRS.
     Dates: start: 20080702
  4. FENTANYL CITRATE [Concomitant]
     Dosage: 2.5 MG, 2.5 MG
     Dates: start: 20080715
  5. OXYCONTIN [Concomitant]
     Indication: CANCER PAIN
     Dosage: 60 MG, UNK
     Route: 048
     Dates: start: 20080707, end: 20080713
  6. MAGLAX [Concomitant]
     Indication: CANCER PAIN
     Dosage: 90 MG, UNK
     Route: 048
     Dates: start: 20080707
  7. NOVAMIN [Concomitant]
     Indication: CANCER PAIN
     Dosage: 15 MG, UNK
     Dates: start: 20080707
  8. LANDSEN [Concomitant]
     Indication: CANCER PAIN
     Dosage: 1G, UNK
     Route: 048
     Dates: start: 20080724
  9. TRYPTANOL [Concomitant]
     Indication: CANCER PAIN
     Dosage: 10 MG, UNK
     Route: 048
     Dates: start: 20080813

REACTIONS (4)
  - HYPOAESTHESIA [None]
  - LUNG NEOPLASM [None]
  - PULMONARY EMBOLISM [None]
  - TUMOUR THROMBOSIS [None]
